FAERS Safety Report 6085487-3 (Version None)
Quarter: 2009Q1

REPORT INFORMATION
  Report Type: 
  Country: None (occurrence: None)
  Receive Date: 20090220
  Receipt Date: 20090216
  Transmission Date: 20090719
  Serious: Yes (Hospitalization)
  Sender: FDA-Public Use
  Company Number: GB-AMGEN-UK330439

PATIENT
  Sex: Female
  Weight: 84.4 kg

DRUGS (2)
  1. PANITUMUMAB [Suspect]
     Indication: COLORECTAL CANCER
     Route: 042
     Dates: start: 20090107
  2. IRINOTECAN HCL [Suspect]
     Route: 042
     Dates: start: 20090107

REACTIONS (1)
  - FEBRILE NEUTROPENIA [None]
